FAERS Safety Report 7704207-7 (Version None)
Quarter: 2011Q3

REPORT INFORMATION
  Report Type: 
  Country: None (occurrence: None)
  Receive Date: 20110818
  Receipt Date: 20110804
  Transmission Date: 20111222
  Serious: Yes (Hospitalization, Other)
  Sender: FDA-Public Use
  Company Number: AUR-APL-2011-02715

PATIENT
  Age: 57 Year
  Sex: Male

DRUGS (13)
  1. NAFTIDROFURYL OXALATE (NAFTIDROFURYL OXALATE) [Concomitant]
  2. ENOXAPARIN SODIUM [Concomitant]
  3. ASPIRIN [Concomitant]
  4. NITROGLYCERIN [Concomitant]
  5. RAMIPRIL [Concomitant]
  6. SIMVASTATIN [Suspect]
     Indication: HYPERCHOLESTEROLAEMIA
     Dosage: 40 MG (40 MG, 1 IN 1 D),ORAL
     Route: 048
     Dates: start: 20060727, end: 20110522
  7. CARVEDILOL [Concomitant]
  8. ACETAMINOPHEN [Concomitant]
  9. TRIMETHOPRIM [Suspect]
     Indication: URINARY TRACT INFECTION
     Dosage: 200 MG (200 MG, 1 IN 1 D),ORAL
     Route: 048
     Dates: start: 20110520, end: 20110522
  10. RANOLAZINE [Suspect]
     Dosage: 750 MG (375 MG, 2 IN 1 D),ORAL, 1000 MG (500 MG,2 IN 1 D) ,ORAL
     Route: 048
     Dates: start: 20110506, end: 20110522
  11. RANOLAZINE [Suspect]
     Dosage: 750 MG (375 MG, 2 IN 1 D),ORAL, 1000 MG (500 MG,2 IN 1 D) ,ORAL
     Route: 048
     Dates: start: 20110407, end: 20110505
  12. AMLODIPINE [Concomitant]
  13. ISOSORBIDE MONONITRATE [Concomitant]

REACTIONS (7)
  - RHABDOMYOLYSIS [None]
  - BLOOD UREA INCREASED [None]
  - ANGINA PECTORIS [None]
  - DRUG INTERACTION [None]
  - VOMITING [None]
  - CHROMATURIA [None]
  - URINARY TRACT INFECTION [None]
